FAERS Safety Report 15837211 (Version 6)
Quarter: 2021Q3

REPORT INFORMATION
  Report Type: Spontaneous
  Country: JP (occurrence: JP)
  Receive Date: 20190117
  Receipt Date: 20210915
  Transmission Date: 20211014
  Serious: Yes (Death, Hospitalization, Other)
  Sender: FDA-Public Use
  Company Number: JP-EISAI MEDICAL RESEARCH-EC-2019-050376

PATIENT
  Age: 69 Year
  Sex: Female
  Weight: 94 kg

DRUGS (4)
  1. LENVATINIB [Suspect]
     Active Substance: LENVATINIB
     Route: 048
  2. LENVATINIB [Suspect]
     Active Substance: LENVATINIB
     Indication: ANAPLASTIC THYROID CANCER
     Route: 048
  3. LENVATINIB [Suspect]
     Active Substance: LENVATINIB
     Route: 048
  4. LENVATINIB [Suspect]
     Active Substance: LENVATINIB
     Route: 048

REACTIONS (11)
  - Hypertension [Unknown]
  - Decreased appetite [Unknown]
  - Oesophageal fistula [Unknown]
  - Paralysis recurrent laryngeal nerve [Unknown]
  - Skin disorder [Unknown]
  - Post procedural haemorrhage [Unknown]
  - Respiratory failure [Fatal]
  - Tumour cavitation [Unknown]
  - Tumour lysis syndrome [Unknown]
  - Dyspnoea [Unknown]
  - Neck pain [Unknown]
